FAERS Safety Report 9849923 (Version 2)
Quarter: 2014Q1

REPORT INFORMATION
  Report Type: Spontaneous
  Country: US (occurrence: US)
  Receive Date: 20140128
  Receipt Date: 20140221
  Transmission Date: 20141002
  Serious: Yes (Hospitalization)
  Sender: FDA-Public Use
  Company Number: US-ELI_LILLY_AND_COMPANY-US201401007472

PATIENT
  Age: 79 Year
  Sex: Female

DRUGS (12)
  1. HUMULIN 30% REGULAR, 70% NPH [Suspect]
     Indication: TYPE 2 DIABETES MELLITUS
     Dosage: UNK
     Route: 065
     Dates: end: 20130221
  2. HUMALOG LISPRO [Suspect]
     Indication: TYPE 2 DIABETES MELLITUS
     Dosage: 17 U, TID
     Route: 065
     Dates: start: 20130221
  3. HUMALOG LISPRO [Suspect]
     Dosage: 18 U, TID
     Route: 065
  4. LANTUS [Concomitant]
     Indication: TYPE 2 DIABETES MELLITUS
     Dosage: 37 U, EACH EVENING
     Route: 065
  5. PLAVIX [Concomitant]
  6. LIPITOR [Concomitant]
  7. OXYBUTIN [Concomitant]
  8. BENAZEPRIL [Concomitant]
  9. AMLODIPINE [Concomitant]
  10. METOPROLOL [Concomitant]
  11. LORAZEPAM [Concomitant]
  12. OXYGEN [Concomitant]

REACTIONS (3)
  - Dyspepsia [Recovering/Resolving]
  - Vomiting [Recovering/Resolving]
  - Nausea [Not Recovered/Not Resolved]
